FAERS Safety Report 12284182 (Version 4)
Quarter: 2016Q2

REPORT INFORMATION
  Report Type: Spontaneous
  Country: US (occurrence: US)
  Receive Date: 20160419
  Receipt Date: 20160525
  Transmission Date: 20160815
  Serious: Yes (Other)
  Sender: FDA-Public Use
  Company Number: US-009507513-1604USA008900

PATIENT
  Age: 14 Year
  Sex: Female

DRUGS (1)
  1. NEXPLANON [Suspect]
     Active Substance: ETONOGESTREL
     Indication: CONTRACEPTION
     Dosage: UNK
     Route: 059
     Dates: start: 20150116

REACTIONS (7)
  - Pregnancy with implant contraceptive [Unknown]
  - Device breakage [Not Recovered/Not Resolved]
  - Unintended pregnancy [Unknown]
  - Implant site vesicles [Unknown]
  - Complication associated with device [Not Recovered/Not Resolved]
  - Implant site infection [Unknown]
  - Device difficult to use [Not Recovered/Not Resolved]

NARRATIVE: CASE EVENT DATE: 2015
